FAERS Safety Report 7122509-2 (Version None)
Quarter: 2010Q4

REPORT INFORMATION
  Report Type: 
  Country: None (occurrence: None)
  Receive Date: 20101122
  Receipt Date: 20101122
  Transmission Date: 20110411
  Serious: Yes (Hospitalization)
  Sender: FDA-Public Use
  Company Number: None

PATIENT
  Sex: Female
  Weight: 57.3 kg

DRUGS (9)
  1. OFATUMUMAB 1000MG [Suspect]
     Indication: NON-HODGKIN'S LYMPHOMA
     Dosage: 1000MG 1  IV
     Route: 042
     Dates: start: 20101103
  2. BORTEZOMIB [Suspect]
     Indication: NON-HODGKIN'S LYMPHOMA
     Dosage: 2 MG 1 IV
     Route: 042
  3. PANTOPRAZOLE [Concomitant]
  4. ASPIRIN [Concomitant]
  5. VALACYCLOVIR [Concomitant]
  6. METOPROLOL [Concomitant]
  7. HCTX [Concomitant]
  8. FOSAMAX [Concomitant]
  9. LISINOPRIL [Concomitant]

REACTIONS (4)
  - DIARRHOEA [None]
  - DIARRHOEA HAEMORRHAGIC [None]
  - NAUSEA [None]
  - VOMITING [None]
